FAERS Safety Report 8448976-X (Version None)
Quarter: 2012Q2

REPORT INFORMATION
  Report Type: 
  Country: None (occurrence: None)
  Receive Date: 20120619
  Receipt Date: 20120611
  Transmission Date: 20120825
  Serious: Yes (Other)
  Sender: FDA-Public Use
  Company Number: US-RB-039589-12

PATIENT
  Sex: Male
  Weight: 4 kg

DRUGS (5)
  1. SUBOXONE [Suspect]
     Indication: DRUG DEPENDENCE
     Route: 064
     Dates: start: 20110501, end: 20110701
  2. OPIATES [Suspect]
     Indication: PAIN
     Dosage: UNKNOWN DOSAGE DETAILS
     Route: 063
     Dates: start: 20120215, end: 20120224
  3. BUPRENORPHINE [Suspect]
     Indication: DRUG DEPENDENCE
     Dosage: 6 MG DAILY
     Route: 063
     Dates: start: 20120225, end: 20120101
  4. BUPRENORPHINE [Suspect]
     Dosage: VARIOUS DOSES DAILY
     Route: 064
     Dates: start: 20110701, end: 20120213
  5. BUPRENORPHINE [Suspect]
     Dosage: 10 MG DAILY
     Route: 063
     Dates: start: 20120101

REACTIONS (7)
  - LARGE FOR DATES BABY [None]
  - DERMATITIS DIAPER [None]
  - EXPOSURE DURING BREAST FEEDING [None]
  - BLOOD GLUCOSE DECREASED [None]
  - JAUNDICE NEONATAL [None]
  - CONTUSION [None]
  - FOETAL EXPOSURE DURING PREGNANCY [None]
